FAERS Safety Report 22895881 (Version 3)
Quarter: 2024Q2

REPORT INFORMATION
  Report Type: Spontaneous
  Country: US (occurrence: US)
  Receive Date: 20230901
  Receipt Date: 20240618
  Transmission Date: 20240716
  Serious: No
  Sender: FDA-Public Use
  Company Number: US-PFIZER INC-PV202300148798

PATIENT
  Sex: Female

DRUGS (6)
  1. IBRANCE [Suspect]
     Active Substance: PALBOCICLIB
     Indication: Breast cancer female
     Dosage: 125 MG
     Dates: start: 201601
  2. IBRANCE [Suspect]
     Active Substance: PALBOCICLIB
     Indication: Hormone receptor positive breast cancer
  3. IBRANCE [Suspect]
     Active Substance: PALBOCICLIB
     Indication: Breast cancer metastatic
  4. FASLODEX [Concomitant]
     Active Substance: FULVESTRANT
     Dosage: UNK
     Dates: start: 201602
  5. FULVESTRANT [Concomitant]
     Active Substance: FULVESTRANT
     Indication: Disease progression
     Dosage: UNK
  6. FULVESTRANT [Concomitant]
     Active Substance: FULVESTRANT
     Indication: Endocrine disorder

REACTIONS (3)
  - COVID-19 [Unknown]
  - Influenza [Unknown]
  - Nausea [Unknown]
